FAERS Safety Report 24321321 (Version 1)
Quarter: 2024Q3

REPORT INFORMATION
  Report Type: Other
  Country: CN (occurrence: CN)
  Receive Date: 20240916
  Receipt Date: 20240916
  Transmission Date: 20241016
  Serious: Yes (Hospitalization)
  Sender: Evive Biotechnology
  Company Number: CN-EVIVE BIOTECHNOLOGY SINGAPORE PTE. LTD.-EVI-CN-2024-000032

PATIENT
  Age: 51 Year
  Sex: Female
  Weight: 57 kg

DRUGS (1)
  1. RYZNEUTA [Suspect]
     Active Substance: EFBEMALENOGRASTIM ALFA-VUXW
     Indication: Neutropenia
     Dosage: 20 MILLIGRAM, QD
     Dates: start: 20240828, end: 20240828

REACTIONS (6)
  - Pyrexia [Recovering/Resolving]
  - Pain [Recovering/Resolving]
  - Myocardial necrosis marker increased [Recovering/Resolving]
  - Asthenia [Recovering/Resolving]
  - White blood cell count increased [Recovering/Resolving]
  - Decreased appetite [Recovering/Resolving]

NARRATIVE: CASE EVENT DATE: 20240902
